FAERS Safety Report 13462638 (Version 1)
Quarter: 2017Q2

REPORT INFORMATION
  Report Type: Other
  Country: GB (occurrence: GB)
  Receive Date: 20170420
  Receipt Date: 20170420
  Transmission Date: 20170830
  Serious: Yes (Other)
  Sender: FDA-Public Use
  Company Number: GB-LUPIN PHARMACEUTICALS INC.-2017-01793

PATIENT

DRUGS (1)
  1. LISINOPRIL AND HYDROCHLOROTHIAZIDE TABLETS [Suspect]
     Active Substance: HYDROCHLOROTHIAZIDE\LISINOPRIL
     Indication: HYPERTENSION
     Dosage: 20 MG, QD
     Route: 048
     Dates: start: 1999, end: 20170301

REACTIONS (7)
  - Blood uric acid increased [Unknown]
  - Abasia [None]
  - Pain in extremity [Not Recovered/Not Resolved]
  - Peripheral swelling [Not Recovered/Not Resolved]
  - Insomnia [None]
  - Disturbance in attention [None]
  - Feeling hot [Not Recovered/Not Resolved]
